FAERS Safety Report 19247404 (Version 1)
Quarter: 2021Q2

REPORT INFORMATION
  Report Type: Spontaneous
  Country: US (occurrence: US)
  Receive Date: 20210512
  Receipt Date: 20210512
  Transmission Date: 20210717
  Serious: No
  Sender: FDA-Public Use
  Company Number: None

PATIENT
  Age: 42 Year
  Sex: Female

DRUGS (1)
  1. OPSUMIT [Suspect]
     Active Substance: MACITENTAN
     Indication: PULMONARY ARTERIAL HYPERTENSION
     Route: 048
     Dates: start: 20201118

REACTIONS (5)
  - Dyspnoea [None]
  - Dizziness [None]
  - Heavy menstrual bleeding [None]
  - Anaemia [None]
  - Urinary tract infection [None]

NARRATIVE: CASE EVENT DATE: 20210423
